FAERS Safety Report 14184099 (Version 1)
Quarter: 2017Q4

REPORT INFORMATION
  Report Type: Spontaneous
  Country: DE (occurrence: DE)
  Receive Date: 20171113
  Receipt Date: 20171113
  Transmission Date: 20180321
  Serious: Yes (Death, Other)
  Sender: FDA-Public Use
  Company Number: DE-SHENZHEN TECHDOW PHARMACEUTICAL CO. LTD-DE-2017TEC0000062

PATIENT
  Age: 45 Year
  Sex: Female

DRUGS (1)
  1. HEPARIN SODIUM INJECTION USP, PRESERVATIVE FREE [Suspect]
     Active Substance: HEPARIN SODIUM
     Indication: PRODUCT USED FOR UNKNOWN INDICATION
     Dosage: UNK

REACTIONS (4)
  - Cardiac arrest [Fatal]
  - Thrombosis in device [Fatal]
  - Myocardial infarction [Unknown]
  - Heparin-induced thrombocytopenia [Unknown]
